FAERS Safety Report 4554038-4 (Version None)
Quarter: 2005Q1

REPORT INFORMATION
  Report Type: 
  Country: None (occurrence: None)
  Receive Date: 20050118
  Receipt Date: 20041129
  Transmission Date: 20050727
  Serious: Yes (Life-Threatening, Hospitalization)
  Sender: FDA-Public Use
  Company Number: US-MERCK-0411USA04098

PATIENT
  Age: 57 Year
  Sex: Male
  Weight: 86 kg

DRUGS (8)
  1. VIOXX [Suspect]
     Indication: ARTHRITIS
     Route: 048
     Dates: end: 20041001
  2. PEPCID AC [Concomitant]
     Route: 048
  3. ASPIRIN [Concomitant]
     Route: 048
  4. ZANTAC [Concomitant]
     Route: 048
  5. ALTACE [Concomitant]
     Route: 048
  6. TOPROL-XL [Concomitant]
     Route: 048
  7. LOPID [Concomitant]
     Route: 048
  8. NORVASC [Concomitant]
     Route: 065

REACTIONS (7)
  - ACUTE MYOCARDIAL INFARCTION [None]
  - ATRIAL FIBRILLATION [None]
  - CORONARY ARTERY DISEASE [None]
  - GASTROOESOPHAGEAL REFLUX DISEASE [None]
  - SINUS DISORDER [None]
  - TRANSIENT ISCHAEMIC ATTACK [None]
  - VENTRICULAR DYSFUNCTION [None]
